FAERS Safety Report 6930994-1 (Version None)
Quarter: 2010Q3

REPORT INFORMATION
  Report Type: 
  Country: None (occurrence: None)
  Receive Date: 20100817
  Receipt Date: 20100817
  Transmission Date: 20110219
  Serious: Yes (Other)
  Sender: FDA-Public Use
  Company Number: None

PATIENT
  Age: 56 Year
  Sex: Female
  Weight: 64.4108 kg

DRUGS (1)
  1. ARESTIN [Suspect]
     Indication: GINGIVAL RECESSION

REACTIONS (4)
  - CALCINOSIS [None]
  - INFLAMMATION [None]
  - PAIN IN EXTREMITY [None]
  - TENDON RUPTURE [None]
